FAERS Safety Report 7031472-4 (Version None)
Quarter: 2010Q4

REPORT INFORMATION
  Report Type: 
  Country: None (occurrence: None)
  Receive Date: 20101006
  Receipt Date: 20100924
  Transmission Date: 20110411
  Serious: Yes (Other)
  Sender: FDA-Public Use
  Company Number: US-PFIZER INC-2010122378

PATIENT
  Sex: Female

DRUGS (7)
  1. NEURONTIN [Suspect]
     Indication: PAIN
     Dosage: 300 MG, 3X/DAY
     Route: 048
  2. NEURONTIN [Suspect]
     Indication: NEUROPATHY PERIPHERAL
  3. NEURONTIN [Suspect]
     Indication: CONVULSION
  4. DILANTIN [Suspect]
     Indication: CONVULSION
     Dosage: 100MG IN THE MORNING AND 200 MG AT NIGHT
     Route: 048
  5. MOTRIN [Concomitant]
  6. VITAMINS [Concomitant]
  7. CALCIUM [Concomitant]

REACTIONS (3)
  - COGNITIVE DISORDER [None]
  - EPILEPSY [None]
  - FIBROMYALGIA [None]
